FAERS Safety Report 9528048 (Version 2)
Quarter: 2013Q4

REPORT INFORMATION
  Report Type: Spontaneous
  Country: IT (occurrence: None)
  Receive Date: 20130913
  Receipt Date: 20131122
  Transmission Date: 20140711
  Serious: Yes (Other)
  Sender: FDA-Public Use
  Company Number: KAD201309-001178

PATIENT
  Age: 52 Year
  Sex: Male
  Weight: 94 kg

DRUGS (4)
  1. RIBAVIRIN [Suspect]
     Indication: CHRONIC HEPATITIS C
     Dates: start: 20130327, end: 20130524
  2. PEGASYS (PEGINTERFERON ALFA-2A) [Suspect]
     Indication: CHRONIC HEPATITIS C
     Dates: start: 20130327, end: 20130524
  3. VICTRELIS [Suspect]
     Indication: CHRONIC HEPATITIS C
     Dates: start: 20130508, end: 20130524
  4. EPREX (ERYTHROPOIETIN) [Concomitant]

REACTIONS (2)
  - Cranial nerve paralysis [None]
  - VIIth nerve paralysis [None]
